FAERS Safety Report 5485978-X (Version None)
Quarter: 2007Q4

REPORT INFORMATION
  Report Type: 
  Country: None (occurrence: None)
  Receive Date: 20071012
  Receipt Date: 20070926
  Transmission Date: 20080405
  Serious: Yes (Life-Threatening, Hospitalization)
  Sender: FDA-Public Use
  Company Number: DSA_30360_2007

PATIENT
  Sex: Female

DRUGS (3)
  1. LORAZEPAM [Suspect]
     Dosage: (50 MG 1X ORAL)
     Route: 048
     Dates: start: 20070801, end: 20070801
  2. BETAHISTINE (BETAHISTINE) [Suspect]
     Dosage: (534 MG 1X ORAL)
     Route: 048
     Dates: start: 20070801, end: 20070801
  3. TRIMIPRAMINE (TRIMIPRAMINE) 100 MG [Suspect]
     Dosage: (1000 MG 1X ORAL)
     Route: 048
     Dates: start: 20070801, end: 20070801

REACTIONS (3)
  - RHABDOMYOLYSIS [None]
  - SOMNOLENCE [None]
  - SYSTOLIC HYPERTENSION [None]
